FAERS Safety Report 6569350-7 (Version None)
Quarter: 2010Q1

REPORT INFORMATION
  Report Type: 
  Country: None (occurrence: None)
  Receive Date: 20100204
  Receipt Date: 20100128
  Transmission Date: 20100710
  Serious: Yes (Hospitalization, Disabling)
  Sender: FDA-Public Use
  Company Number: DE-BIOGENIDEC-2010BI000454

PATIENT
  Age: 41 Year
  Sex: Female
  Weight: 78 kg

DRUGS (1)
  1. TYSABRI [Suspect]
     Indication: MULTIPLE SCLEROSIS
     Route: 042
     Dates: start: 20080315

REACTIONS (1)
  - UTERINE LEIOMYOMA [None]
